FAERS Safety Report 8934188 (Version 1)
Quarter: 2012Q4

REPORT INFORMATION
  Report Type: 
  Country: US (occurrence: US)
  Receive Date: 20121129
  Receipt Date: 20121129
  Transmission Date: 20130627
  Serious: No
  Sender: FDA-Public Use
  Company Number: US-GLAXOSMITHKLINE-A0991153A

PATIENT
  Sex: Male

DRUGS (3)
  1. BUPROPION HYDROCHLORIDE [Suspect]
     Indication: DEPRESSION
     Route: 048
     Dates: start: 201206, end: 201206
  2. XANAX [Concomitant]
  3. TRAZODONE [Concomitant]

REACTIONS (3)
  - Hypoaesthesia [Recovered/Resolved]
  - Depression [Recovered/Resolved]
  - Drug hypersensitivity [Recovered/Resolved]
